FAERS Safety Report 23077948 (Version 1)
Quarter: 2023Q4

REPORT INFORMATION
  Report Type: Spontaneous
  Country: DE (occurrence: DE)
  Receive Date: 20231018
  Receipt Date: 20231018
  Transmission Date: 20240110
  Serious: Yes (Life-Threatening)
  Sender: FDA-Public Use
  Company Number: DE-drreddys-LIT/GER/23/0180390

PATIENT
  Weight: 3.31 kg

DRUGS (3)
  1. FONDAPARINUX [Suspect]
     Active Substance: FONDAPARINUX
     Indication: Product used for unknown indication
  2. FONDAPARINUX [Suspect]
     Active Substance: FONDAPARINUX
  3. FONDAPARINUX [Suspect]
     Active Substance: FONDAPARINUX
     Dosage: AGAIN INCREASED TO HER INITIAL PREGNANCY DOSE OF 10 MG/DAY

REACTIONS (2)
  - Respiratory distress [Unknown]
  - Maternal exposure during breast feeding [Unknown]
